FAERS Safety Report 11080875 (Version 1)
Quarter: 2015Q2

REPORT INFORMATION
  Report Type: Spontaneous
  Country: US (occurrence: None)
  Receive Date: 20150430
  Receipt Date: 20150430
  Transmission Date: 20150821
  Serious: Yes (Hospitalization, Disabling)
  Sender: FDA-Public Use
  Company Number: None

PATIENT
  Age: 28 Year
  Sex: Female
  Weight: 124.74 kg

DRUGS (7)
  1. PRILOSEC [Concomitant]
     Active Substance: OMEPRAZOLE MAGNESIUM
  2. GABAPENTIN. [Concomitant]
     Active Substance: GABAPENTIN
  3. BENADRYL [Concomitant]
     Active Substance: DIPHENHYDRAMINE HYDROCHLORIDE
  4. WOMENS DAILY VITAMIN [Concomitant]
  5. MELATONIN [Concomitant]
     Active Substance: MELATONIN
  6. PAXIL [Suspect]
     Active Substance: PAROXETINE HYDROCHLORIDE
     Indication: DEPRESSION
     Dosage: 1 PILL
     Dates: start: 20141202, end: 20150119
  7. METOPROLOL [Concomitant]
     Active Substance: METOPROLOL

REACTIONS (3)
  - Heart rate increased [None]
  - Weight increased [None]
  - Cardiac disorder [None]

NARRATIVE: CASE EVENT DATE: 20150119
